FAERS Safety Report 4702818-4 (Version None)
Quarter: 2005Q2

REPORT INFORMATION
  Report Type: 
  Country: None (occurrence: None)
  Receive Date: 20050629
  Receipt Date: 20050421
  Transmission Date: 20051028
  Serious: Yes (Hospitalization, Other)
  Sender: FDA-Public Use
  Company Number: US-SANOFI-SYNTHELABO-F01200500619

PATIENT
  Sex: Male

DRUGS (11)
  1. OXALIPLATIN [Suspect]
     Indication: COLORECTAL CANCER METASTATIC
     Route: 042
     Dates: start: 20050317, end: 20050317
  2. FLUOROURACIL [Suspect]
     Dosage: 884 MG IV BOLUS AND 2652 MG IV CONTINUOUS INFUSION
     Route: 042
     Dates: start: 20050317, end: 20050317
  3. LEUCOVORIN [Suspect]
     Route: 042
     Dates: start: 20050317, end: 20050317
  4. BEVACIZUMAB [Suspect]
     Route: 042
     Dates: start: 20050317, end: 20050317
  5. ERLOTINIB [Suspect]
     Route: 048
     Dates: start: 20050224, end: 20050317
  6. ATIVAN [Concomitant]
  7. COMPAZINE [Concomitant]
  8. FRAGMIN [Concomitant]
  9. LOMOTIL [Concomitant]
  10. LOPERAMIDE HYDROCHLORIDE [Concomitant]
  11. ZOFRAN [Concomitant]

REACTIONS (7)
  - DEEP VEIN THROMBOSIS [None]
  - DEHYDRATION [None]
  - DIARRHOEA [None]
  - GASTROINTESTINAL PERFORATION [None]
  - ORAL INTAKE REDUCED [None]
  - PLEURAL EFFUSION [None]
  - TACHYCARDIA [None]
